FAERS Safety Report 9726329 (Version 4)
Quarter: 2014Q4

REPORT INFORMATION
  Report Type: Spontaneous
  Country: US (occurrence: US)
  Receive Date: 20131203
  Receipt Date: 20141105
  Transmission Date: 20150529
  Serious: Yes (Hospitalization, Other)
  Sender: FDA-Public Use
  Company Number: US-BAYER-2013-145049

PATIENT
  Age: 46 Year
  Sex: Female
  Weight: 113.38 kg

DRUGS (6)
  1. ROBAXIN [Concomitant]
     Active Substance: METHOCARBAMOL
  2. PERCOCET [Concomitant]
     Active Substance: ACETAMINOPHEN\OXYCODONE HYDROCHLORIDE
  3. MIRENA [Suspect]
     Active Substance: LEVONORGESTREL
     Indication: CONTRACEPTION
     Dosage: 20 MCG/24HR, CONT
     Route: 015
     Dates: start: 200904, end: 20110428
  4. NEXIUM [Concomitant]
     Active Substance: ESOMEPRAZOLE MAGNESIUM
  5. COLACE [Concomitant]
     Active Substance: DOCUSATE SODIUM
  6. IBUPROFEN. [Concomitant]
     Active Substance: IBUPROFEN

REACTIONS (11)
  - Amenorrhoea [None]
  - Depression [None]
  - Anxiety [None]
  - Hormone level abnormal [None]
  - Uterine perforation [None]
  - Hot flush [None]
  - Drug dependence [None]
  - Injury [None]
  - Insomnia [None]
  - Infertility female [None]
  - Premature menopause [None]
